FAERS Safety Report 9384868 (Version 1)
Quarter: 2013Q3

REPORT INFORMATION
  Report Type: Spontaneous
  Country: BE (occurrence: None)
  Receive Date: 20130701
  Receipt Date: 20130701
  Transmission Date: 20140515
  Serious: Yes (Hospitalization)
  Sender: FDA-Public Use
  Company Number: SYM-2013-04784

PATIENT
  Age: 48 Year
  Sex: Male

DRUGS (4)
  1. METRONIDAZOLE (METRONIDAZOLE) (TABLETS) (METRONIDAZOLE) [Suspect]
     Indication: CLOSTRIDIUM DIFFICILE COLITIS
  2. DISULFIRAM [Suspect]
     Indication: CLOSTRIDIUM DIFFICILE COLITIS
  3. VANCOMYCIN (VANCOMYCIN) (VANCOMYCIN) [Concomitant]
  4. OMEPRAZOLE (OMEPRAZOLE) (OMEPRAZOLE) [Concomitant]

REACTIONS (3)
  - Delusion [None]
  - Insomnia [None]
  - Anxiety [None]
